FAERS Safety Report 9449764 (Version 1)
Quarter: 2013Q3

REPORT INFORMATION
  Report Type: Spontaneous
  Country: US (occurrence: US)
  Receive Date: 20130809
  Receipt Date: 20130809
  Transmission Date: 20140515
  Serious: No
  Sender: FDA-Public Use
  Company Number: US-009507513-1307USA007982

PATIENT
  Age: 25 Year
  Sex: Female

DRUGS (1)
  1. NUVARING [Suspect]
     Dosage: 1 RING FOR 3 WEEKS
     Route: 067
     Dates: start: 201305

REACTIONS (2)
  - Device expulsion [Unknown]
  - Medication error [Unknown]
